FAERS Safety Report 9152626 (Version 1)
Quarter: 2013Q1

REPORT INFORMATION
  Report Type: Spontaneous
  Country: US (occurrence: US)
  Receive Date: 20130308
  Receipt Date: 20130308
  Transmission Date: 20140127
  Serious: Yes (Hospitalization, Other)
  Sender: FDA-Public Use
  Company Number: US-009507513-2010SP057915

PATIENT
  Sex: Female
  Weight: 55.79 kg

DRUGS (2)
  1. NUVARING [Suspect]
     Indication: CONTRACEPTION
     Dates: start: 200505, end: 200508
  2. ADDERALL XR [Concomitant]
     Indication: ATTENTION DEFICIT/HYPERACTIVITY DISORDER

REACTIONS (12)
  - Deep vein thrombosis [Not Recovered/Not Resolved]
  - Muscle strain [Unknown]
  - Antiphospholipid syndrome [Unknown]
  - Plasminogen activator inhibitor increased [Unknown]
  - Post thrombotic syndrome [Not Recovered/Not Resolved]
  - Treatment noncompliance [Unknown]
  - Angioplasty [Unknown]
  - Stent placement [Unknown]
  - Intervertebral disc protrusion [Recovered/Resolved]
  - Deep vein thrombosis [Unknown]
  - Pulmonary embolism [Unknown]
  - Maternal exposure before pregnancy [Recovered/Resolved]
